FAERS Safety Report 8132528-5 (Version None)
Quarter: 2012Q1

REPORT INFORMATION
  Report Type: 
  Country: None (occurrence: None)
  Receive Date: 20120213
  Receipt Date: 20120202
  Transmission Date: 20120608
  Serious: Yes (Death, Other)
  Sender: FDA-Public Use
  Company Number: JP-ALEXION-A201001538

PATIENT
  Age: 72 Year
  Sex: Male

DRUGS (2)
  1. BLOOD AND RELATED PRODUCTS [Concomitant]
  2. SOLIRIS [Suspect]
     Indication: PAROXYSMAL NOCTURNAL HAEMOGLOBINURIA
     Dosage: 900 MG, Q2W
     Dates: start: 20100623, end: 20101027

REACTIONS (4)
  - TUBERCULOSIS [None]
  - FALL [None]
  - BRAIN CONTUSION [None]
  - CEREBRAL HAEMORRHAGE [None]
